FAERS Safety Report 4531600-6 (Version None)
Quarter: 2004Q4

REPORT INFORMATION
  Report Type: 
  Country: None (occurrence: None)
  Receive Date: 20041216
  Receipt Date: 20041130
  Transmission Date: 20050328
  Serious: Yes (Hospitalization, Other)
  Sender: FDA-Public Use
  Company Number: A0357835A2002001900-1

PATIENT
  Sex: Female

DRUGS (34)
  1. PAXIL [Suspect]
     Indication: DEPRESSION
     Dosage: SEE DOSAGE TEXT / ORAL
     Route: 048
     Dates: start: 20010401
  2. CLONAZEPAM [Concomitant]
  3. ALPRAZOLAM [Concomitant]
  4. BUSPIRONE [Concomitant]
  5. D.PROPOXY-N + PARACETAMOL [Concomitant]
  6. AMOXICILLIN TRIHYDRATE [Concomitant]
  7. NAPROXEN [Concomitant]
  8. AMOX.TRIHYD+POT.CLAVULAN. [Concomitant]
  9. FLAVOXATE HYDROCHLORIDE [Concomitant]
  10. PROCHLORPERAZINE [Concomitant]
  11. NORTRIPTYLINE HCL [Concomitant]
  12. CEPHALEXIN [Concomitant]
  13. CHOLESTYRAMINE [Concomitant]
  14. LOPERAMIDE HYDROCHLORIDE [Concomitant]
  15. MAGNESIUM SULFATE [Concomitant]
  16. TYLENOL W/ CODEINE NO. 3 [Concomitant]
  17. BECLOMETHASONE DIPROPIONATE [Concomitant]
  18. LORATADINE [Concomitant]
  19. DICYCLOMINE HYDROCHLORIDE [Concomitant]
  20. ESGIC [Concomitant]
  21. NORDETTE-21 [Concomitant]
  22. NIZATIDINE [Concomitant]
  23. DARVOCET-N 100 [Concomitant]
  24. VENLAFAXINE HYDROCHLORIDE [Concomitant]
  25. PSYLLIUM HUSK [Concomitant]
  26. FAMOTIDINE [Concomitant]
  27. NICOTINE POLACRILEX [Concomitant]
  28. DIPHENHYDRAMINE HCL [Concomitant]
  29. DROPERIDOL [Concomitant]
  30. LIBRIUM [Concomitant]
  31. METOCLOPRAMIDE HCL [Concomitant]
  32. CEFTRIAXONE SODIUM [Concomitant]
  33. PARACETAMOL [Concomitant]
  34. PETHIDINE HYDROCHLORIDE [Concomitant]

REACTIONS (21)
  - ACNE CYSTIC [None]
  - AGGRESSION [None]
  - AGORAPHOBIA [None]
  - ANXIETY [None]
  - ASTHENIA [None]
  - CONVULSION [None]
  - DEPRESSION [None]
  - DISTURBANCE IN ATTENTION [None]
  - DRUG EFFECT DECREASED [None]
  - DRUG WITHDRAWAL SYNDROME [None]
  - FEAR [None]
  - IMPAIRED WORK ABILITY [None]
  - INFLUENZA [None]
  - LETHARGY [None]
  - MEMORY IMPAIRMENT [None]
  - MIGRAINE [None]
  - NERVOUSNESS [None]
  - NIGHTMARE [None]
  - PANIC ATTACK [None]
  - SUICIDAL IDEATION [None]
  - SUICIDE ATTEMPT [None]
